FAERS Safety Report 24594728 (Version 1)
Quarter: 2024Q4

REPORT INFORMATION
  Report Type: Spontaneous
  Country: US (occurrence: US)
  Receive Date: 20241108
  Receipt Date: 20241108
  Transmission Date: 20250115
  Serious: Yes (Death, Other)
  Sender: REGENERON
  Company Number: US-REGENERON PHARMACEUTICALS, INC.-2024-148326

PATIENT
  Age: 84 Year
  Sex: Female

DRUGS (3)
  1. LIBTAYO [Suspect]
     Active Substance: CEMIPLIMAB-RWLC
     Indication: Skin squamous cell carcinoma metastatic
     Dosage: UNK
  2. TACROLIMUS [Concomitant]
     Active Substance: TACROLIMUS
     Indication: Immunosuppression
     Dosage: 1.5MG AM AND 0.5MG PM
  3. PREDNISONE [Concomitant]
     Active Substance: PREDNISONE
     Indication: Immunosuppression
     Dosage: 7.5 MG, QD

REACTIONS (7)
  - Cardiovascular disorder [Fatal]
  - Cerebrovascular accident [Fatal]
  - Asthenia [Fatal]
  - Kidney transplant rejection [Unknown]
  - Fall [Unknown]
  - Blood creatine increased [Unknown]
  - Neoplasm progression [Unknown]
